FAERS Safety Report 14083484 (Version 7)
Quarter: 2018Q3

REPORT INFORMATION
  Report Type: Spontaneous
  Country: US (occurrence: US)
  Receive Date: 20171013
  Receipt Date: 20180815
  Transmission Date: 20181010
  Serious: Yes (Other)
  Sender: FDA-Public Use
  Company Number: US-PFIZER INC-2017256267

PATIENT
  Age: 74 Year
  Sex: Female
  Weight: 86.17 kg

DRUGS (39)
  1. ULTRAM [Concomitant]
     Active Substance: TRAMADOL HYDROCHLORIDE
     Indication: PAIN
     Dosage: 100 MG, AS NEEDED (EVERY 6 HOURS AS NEEDED)
     Route: 048
  2. MELATONIN [Concomitant]
     Active Substance: MELATONIN
     Indication: INSOMNIA
     Dosage: 1 MG, AS NEEDED [NIGHTLY]
     Route: 048
  3. ATIVAN [Concomitant]
     Active Substance: LORAZEPAM
     Indication: PRURITUS
  4. LEVOTHYROXINE. [Concomitant]
     Active Substance: LEVOTHYROXINE
     Dosage: 50 UG, 1X/DAY[DAILY MORNING]
     Route: 048
  5. MORPHINE SULFATE. [Concomitant]
     Active Substance: MORPHINE SULFATE
     Dosage: UNK
  6. LYRICA [Suspect]
     Active Substance: PREGABALIN
     Dosage: UNK (50  SIG: TAKE 2 CAPS BY MOUTH BID 30)
     Route: 048
  7. LIORESAL [Concomitant]
     Active Substance: BACLOFEN
     Indication: PAIN
     Dosage: 10 MG, AS NEEDED [3 TIME DAILY]
     Route: 048
  8. ZYRTEC [Concomitant]
     Active Substance: CETIRIZINE HYDROCHLORIDE
     Dosage: 10 MG, DAILY
     Route: 048
  9. TYLENOL [Concomitant]
     Active Substance: ACETAMINOPHEN
     Indication: PAIN
     Dosage: 650 MG, AS NEEDED [EVERY 4 HOUR]
     Route: 048
  10. LOSARTAN/POTASSIUM [Concomitant]
     Dosage: UNK
  11. CALCIUM [Concomitant]
     Active Substance: CALCIUM
     Dosage: UNK
  12. LYRICA [Suspect]
     Active Substance: PREGABALIN
     Indication: ARTHRITIS
     Dosage: 50 MG, 2X/DAY [100 MG BY EVERY 12 HOUR]
     Route: 048
  13. CORTEF [Concomitant]
     Active Substance: HYDROCORTISONE
     Dosage: 10 MG, DAILY [BEFORE SUPPER AT 6 PM]
     Route: 048
  14. BENTYL [Concomitant]
     Active Substance: DICYCLOMINE HYDROCHLORIDE
     Dosage: 10 MG, 4X/DAY
     Route: 048
  15. IMODIUM [Concomitant]
     Active Substance: LOPERAMIDE HYDROCHLORIDE
     Dosage: 4 MG, 4X/DAY
     Route: 048
  16. VITAMIN D3 [Concomitant]
     Active Substance: CHOLECALCIFEROL
     Dosage: UNK, DAILY (4000)
  17. MORPHINE SULFATE. [Concomitant]
     Active Substance: MORPHINE SULFATE
     Dosage: 15 MG, EVERY 4 HRS
  18. ZOFRAN [Concomitant]
     Active Substance: ONDANSETRON HYDROCHLORIDE
     Indication: VOMITING
  19. COZAAR [Concomitant]
     Active Substance: LOSARTAN POTASSIUM
     Dosage: 100 MG, DAILY
     Route: 048
  20. POTASSIUM [Concomitant]
     Active Substance: POTASSIUM
     Dosage: UNK
  21. FLONASE [Concomitant]
     Active Substance: FLUTICASONE PROPIONATE
     Dosage: 200 UG, DAILY [2 SPRAYS IN EACH NOSTRIL]
     Route: 045
  22. MAGNESIUM OXIDE. [Concomitant]
     Active Substance: MAGNESIUM OXIDE
     Dosage: 500 MG, DAILY
     Route: 048
  23. ATIVAN [Concomitant]
     Active Substance: LORAZEPAM
     Indication: DISCOMFORT
     Dosage: 1 MG, AS NEEDED [EVERY 8 HOURS]
     Route: 048
  24. VITAMIN B12 [Concomitant]
     Active Substance: CYANOCOBALAMIN
     Dosage: UNK UNK, MONTHLY
  25. TRAMADOL. [Concomitant]
     Active Substance: TRAMADOL
     Indication: ARTHRALGIA
     Dosage: 100 MG, 3X/DAY (2 TABLETS BY MOUTH THREE TIMES A DAY)
     Route: 048
  26. LYRICA [Suspect]
     Active Substance: PREGABALIN
     Indication: ARTHRALGIA
     Dosage: 200 MG, DAILY
     Route: 048
  27. LYRICA [Suspect]
     Active Substance: PREGABALIN
     Indication: OSTEOARTHRITIS
     Dosage: 150 MG, DAILY
     Route: 048
  28. PEPCID [Concomitant]
     Active Substance: FAMOTIDINE
     Dosage: 20 MG, 2X/DAY
     Route: 048
  29. LORAZEPAM. [Concomitant]
     Active Substance: LORAZEPAM
     Dosage: UNK
  30. LYRICA [Suspect]
     Active Substance: PREGABALIN
     Indication: BURNING SENSATION
     Dosage: 100 MG, 2X/DAY (2 CAPSULES BY MOUTH TWICE DAILY)
     Route: 048
     Dates: start: 2017, end: 201807
  31. ZOFRAN [Concomitant]
     Active Substance: ONDANSETRON HYDROCHLORIDE
     Indication: NAUSEA
     Dosage: 8 MG, AS NEEDED [EVERY 8 HOURS AS NEEDED]
     Route: 048
  32. BENTYL [Concomitant]
     Active Substance: DICYCLOMINE HYDROCHLORIDE
     Dosage: UNK
  33. LEVOTHYROXINE. [Concomitant]
     Active Substance: LEVOTHYROXINE
     Dosage: UNK
  34. PROAIR HFA [Concomitant]
     Active Substance: ALBUTEROL SULFATE
     Dosage: UNK (90MCG/ ACTUATION INHALER)
  35. VITAMIN D3 [Concomitant]
     Active Substance: CHOLECALCIFEROL
     Dosage: 2000 IU, DAILY
     Route: 048
  36. VITAMIN B12 [Concomitant]
     Active Substance: CYANOCOBALAMIN
     Dosage: 1000 IU, MONTHLY
  37. HYDROCORTISONE. [Concomitant]
     Active Substance: HYDROCORTISONE
     Dosage: UNK
  38. HYDROCHLOROTHIAZIDE. [Concomitant]
     Active Substance: HYDROCHLOROTHIAZIDE
     Dosage: UNK
  39. MAGNESIUM [Concomitant]
     Active Substance: MAGNESIUM
     Dosage: UNK

REACTIONS (10)
  - Weight increased [Unknown]
  - Cataract [Recovered/Resolved]
  - Drug effect incomplete [Not Recovered/Not Resolved]
  - Vision blurred [Unknown]
  - Malaise [Unknown]
  - Gait disturbance [Unknown]
  - Pain [Unknown]
  - Neuralgia [Unknown]
  - Psoriasis [Not Recovered/Not Resolved]
  - Diarrhoea [Unknown]

NARRATIVE: CASE EVENT DATE: 201802
